FAERS Safety Report 18230125 (Version 1)
Quarter: 2020Q3

REPORT INFORMATION
  Report Type: Spontaneous
  Country: US (occurrence: US)
  Receive Date: 20200903
  Receipt Date: 20200903
  Transmission Date: 20201103
  Serious: No
  Sender: FDA-Public Use
  Company Number: US-TEVA-2020-US-1819335

PATIENT
  Sex: Female

DRUGS (1)
  1. AMBRISENTAN ACTAVIS [Suspect]
     Active Substance: AMBRISENTAN
     Indication: PULMONARY ARTERIAL HYPERTENSION
     Dosage: STARTED 2 TO 3 MONTHS AGO
     Route: 065
     Dates: start: 20200603

REACTIONS (4)
  - Product substitution issue [Unknown]
  - Dyspnoea [Unknown]
  - Therapeutic product effect decreased [Unknown]
  - Drug ineffective [Unknown]
